FAERS Safety Report 20230468 (Version 1)
Quarter: 2021Q4

REPORT INFORMATION
  Report Type: Report from Study
  Country: GB (occurrence: GB)
  Receive Date: 20211227
  Receipt Date: 20211227
  Transmission Date: 20220304
  Serious: Yes (Other)
  Sender: FDA-Public Use
  Company Number: GB-ABBVIE-21K-167-4206948-00

PATIENT
  Age: 61 Year
  Sex: Female

DRUGS (1)
  1. RINVOQ [Suspect]
     Active Substance: UPADACITINIB
     Indication: Product used for unknown indication
     Route: 048

REACTIONS (5)
  - Knee arthroplasty [Recovering/Resolving]
  - Hepatic function abnormal [Unknown]
  - Weight increased [Unknown]
  - Pain [Unknown]
  - Blood disorder [Unknown]

NARRATIVE: CASE EVENT DATE: 20210101
